FAERS Safety Report 5391566-6 (Version None)
Quarter: 2007Q3

REPORT INFORMATION
  Report Type: 
  Country: None (occurrence: None)
  Receive Date: 20070717
  Receipt Date: 20070702
  Transmission Date: 20080115
  Serious: Yes (Other)
  Sender: FDA-Public Use
  Company Number: 100#03#2007-02504

PATIENT
  Age: 45 Year

DRUGS (4)
  1. CITALOPRAM HYDROBROMIDE [Suspect]
     Indication: ANXIETY
     Dosage: 40 MG, ORAL
     Route: 048
     Dates: start: 20030829
  2. CITALOPRAM HYDROBROMIDE [Suspect]
     Indication: DEPRESSION
     Dosage: 40 MG, ORAL
     Route: 048
     Dates: start: 20030829
  3. ALENDRONIC ACID (ALENDRONIC ACID) [Concomitant]
  4. CALCICHEW D3 (LEKOVIT CA) (CALCIUM CARBONATE, COLECALCIFEROL) [Concomitant]

REACTIONS (2)
  - ATRIOVENTRICULAR BLOCK SECOND DEGREE [None]
  - VENTRICULAR EXTRASYSTOLES [None]
